FAERS Safety Report 18932757 (Version 1)
Quarter: 2021Q1

REPORT INFORMATION
  Report Type: Spontaneous
  Country: US (occurrence: US)
  Receive Date: 20210223
  Receipt Date: 20210223
  Transmission Date: 20210420
  Serious: No
  Sender: FDA-Public Use
  Company Number: None

PATIENT
  Age: 21 Year
  Sex: Male
  Weight: 76.5 kg

DRUGS (2)
  1. SALONPAS PAIN RELIEF [Suspect]
     Active Substance: MENTHOL\METHYL SALICYLATE
     Indication: NERVE COMPRESSION
     Route: 062
     Dates: start: 20210219, end: 20210223
  2. SALONPAS PAIN RELIEF [Suspect]
     Active Substance: MENTHOL\METHYL SALICYLATE
     Indication: MUSCLE STRAIN
     Route: 062
     Dates: start: 20210219, end: 20210223

REACTIONS (1)
  - Application site pain [None]

NARRATIVE: CASE EVENT DATE: 20210223
